FAERS Safety Report 6389444-9 (Version None)
Quarter: 2009Q4

REPORT INFORMATION
  Report Type: 
  Country: None (occurrence: None)
  Receive Date: 20091006
  Receipt Date: 20071004
  Transmission Date: 20100525
  Serious: Yes (Hospitalization, Other)
  Sender: FDA-Public Use
  Company Number: US-ASTRAZENECA-2006UW27950

PATIENT
  Age: 47 Year
  Sex: Female
  Weight: 69.4 kg

DRUGS (15)
  1. SEROQUEL [Suspect]
     Indication: MOOD ALTERED
     Dosage: 75-600 MG
     Route: 048
     Dates: start: 20011101
  2. SEROQUEL [Suspect]
     Route: 048
     Dates: start: 20030101
  3. TRILEPTAL [Concomitant]
     Dates: start: 20031026
  4. LAMICTAL [Concomitant]
     Route: 048
     Dates: start: 20011101
  5. LANTUS [Concomitant]
     Dosage: 100 UNIT/ML SC SOLN 15 UNITS SQ QHS, 12 UNITS AT NIGHT
     Dates: start: 20050722
  6. XANAX [Concomitant]
     Dosage: 1-8 MG
     Dates: start: 19960317
  7. DILAUDID [Concomitant]
     Indication: PAIN
     Dosage: 1-2 Q 4 HOURS P.R.N. 1 MG, 2MG
     Dates: start: 20031026
  8. PERCOCET [Concomitant]
     Dates: start: 19990513
  9. HUMALOG [Concomitant]
     Dates: start: 20060922
  10. REGLAN [Concomitant]
     Dosage: 20-40 MG
     Dates: start: 19990513
  11. DARVOCET [Concomitant]
     Dosage: N-100
     Dates: start: 19990513
  12. DEMEROL [Concomitant]
     Route: 042
     Dates: start: 19990513
  13. VICODIN [Concomitant]
     Indication: PAIN
     Dates: start: 19990513
  14. PREVACID [Concomitant]
     Indication: DYSPEPSIA
     Dates: start: 19971201
  15. TRAZODONE [Concomitant]
     Route: 048
     Dates: start: 19960317

REACTIONS (11)
  - DIABETES MELLITUS [None]
  - DIABETES MELLITUS INADEQUATE CONTROL [None]
  - GLUCOSE TOLERANCE IMPAIRED [None]
  - HYPERGLYCAEMIA [None]
  - MONONEUROPATHY [None]
  - PANCREATITIS [None]
  - PANCREATITIS ACUTE [None]
  - PANCREATITIS CHRONIC [None]
  - PANCREATITIS RELAPSING [None]
  - TYPE 1 DIABETES MELLITUS [None]
  - TYPE 2 DIABETES MELLITUS [None]
